FAERS Safety Report 9649454 (Version 1)
Quarter: 2013Q4

REPORT INFORMATION
  Report Type: Spontaneous
  Country: US (occurrence: None)
  Receive Date: 20131018
  Receipt Date: 20131018
  Transmission Date: 20140711
  Serious: No
  Sender: FDA-Public Use
  Company Number: 2013PL000007

PATIENT
  Age: 71 Year
  Sex: Female
  Weight: 86.18 kg

DRUGS (10)
  1. ZYLOPRIM [Suspect]
     Indication: BLOOD URIC ACID INCREASED
     Route: 048
     Dates: start: 20121217, end: 20121219
  2. AMBIEN [Concomitant]
  3. AMITRIPTYLINE [Concomitant]
  4. CLONIDINE [Concomitant]
  5. MULTIVITAMIN [Concomitant]
  6. VITAMIN D [Concomitant]
  7. RENVELA [Concomitant]
  8. METOPROLOL [Concomitant]
  9. FUROSEMIDE [Concomitant]
  10. DIOVAN [Concomitant]

REACTIONS (5)
  - Hypersensitivity [None]
  - Rash [None]
  - Swelling face [None]
  - Eye swelling [None]
  - Pyrexia [None]
